FAERS Safety Report 5285338-0 (Version None)
Quarter: 2007Q2

REPORT INFORMATION
  Report Type: 
  Country: None (occurrence: None)
  Receive Date: 20070403
  Receipt Date: 20070327
  Transmission Date: 20071010
  Serious: Yes (Hospitalization)
  Sender: FDA-Public Use
  Company Number: FR-PFIZER INC-2007024228

PATIENT
  Age: 74 Year
  Sex: Female

DRUGS (4)
  1. XANAX [Suspect]
     Indication: ANXIETY
     Route: 048
  2. IMOVANE [Suspect]
     Indication: SLEEP DISORDER
     Route: 048
  3. HYPERIUM [Suspect]
     Indication: ESSENTIAL HYPERTENSION
     Route: 048
  4. DEROXAT [Suspect]
     Indication: DEPRESSION
     Route: 048

REACTIONS (2)
  - CONDITION AGGRAVATED [None]
  - NEURODERMATITIS [None]
